FAERS Safety Report 11743052 (Version 2)
Quarter: 2016Q1

REPORT INFORMATION
  Report Type: Report from Study
  Country: GB (occurrence: GB)
  Receive Date: 20151116
  Receipt Date: 20160127
  Transmission Date: 20160525
  Serious: Yes (Death, Hospitalization, Other)
  Sender: FDA-Public Use
  Company Number: GB-ROCHE-1091432

PATIENT

DRUGS (2)
  1. BEVACIZUMAB [Suspect]
     Active Substance: BEVACIZUMAB
     Indication: NEOVASCULAR AGE-RELATED MACULAR DEGENERATION
     Dosage: FORM: INJECTION
     Route: 050
  2. RANIBIZUMAB [Suspect]
     Active Substance: RANIBIZUMAB
     Indication: NEOVASCULAR AGE-RELATED MACULAR DEGENERATION
     Route: 050

REACTIONS (43)
  - Pulmonary embolism [Unknown]
  - Eye pruritus [Unknown]
  - Cardiac disorder [Unknown]
  - Cataract traumatic [Unknown]
  - Mediastinal disorder [Unknown]
  - Atrial fibrillation [Unknown]
  - Pneumonia [Unknown]
  - Conjunctivitis allergic [Unknown]
  - Episcleritis [Unknown]
  - Iridocyclitis [Unknown]
  - Death [Fatal]
  - Angina pectoris [Unknown]
  - Transient ischaemic attack [Unknown]
  - Gastrointestinal disorder [Unknown]
  - Nervous system disorder [Unknown]
  - Angiopathy [Unknown]
  - Cardiac failure [Unknown]
  - Retinal detachment [Unknown]
  - Haemorrhage [Unknown]
  - Chalazion [Unknown]
  - Eye infection [Unknown]
  - Eye inflammation [Unknown]
  - Eyelid oedema [Unknown]
  - Foreign body sensation in eyes [Unknown]
  - Uveitis [Unknown]
  - Retinal pigment epithelial tear [Unknown]
  - Cerebrovascular accident [Unknown]
  - Neoplasm [Unknown]
  - Respiratory disorder [Unknown]
  - Cardiac arrest [Unknown]
  - Eyelid irritation [Unknown]
  - Infection [Unknown]
  - Left ventricular failure [Unknown]
  - Pericardial haemorrhage [Unknown]
  - Retinal vein occlusion [Unknown]
  - Conjunctivitis [Unknown]
  - Keratitis [Unknown]
  - Eye irritation [Unknown]
  - Myocardial infarction [Unknown]
  - Deep vein thrombosis [Unknown]
  - Subdural haematoma [Unknown]
  - Blepharitis [Unknown]
  - Conjunctival hyperaemia [Unknown]
